FAERS Safety Report 24623156 (Version 3)
Quarter: 2025Q3

REPORT INFORMATION
  Report Type: Spontaneous
  Country: CN (occurrence: CN)
  Receive Date: 20241115
  Receipt Date: 20250809
  Transmission Date: 20251020
  Serious: Yes (Hospitalization, Other)
  Sender: ALEXION PHARMACEUTICALS
  Company Number: CN-AstraZeneca-CH-00723426A

PATIENT
  Age: 65 Year
  Sex: Male
  Weight: 63 kg

DRUGS (3)
  1. IMFINZI [Suspect]
     Active Substance: DURVALUMAB
     Indication: Cholangiocarcinoma
     Dosage: 500 MILLIGRAM, TID
     Dates: start: 20240620
  2. IMFINZI [Suspect]
     Active Substance: DURVALUMAB
     Dosage: 3RD DOSE
     Dates: start: 20240910
  3. IMFINZI [Suspect]
     Active Substance: DURVALUMAB
     Dosage: 4TH DOSE
     Dates: start: 20241121

REACTIONS (7)
  - Muscular weakness [Recovering/Resolving]
  - Immune-mediated renal disorder [Unknown]
  - Immune-mediated hepatic disorder [Unknown]
  - Vascular occlusion [Unknown]
  - Nephritis [Recovering/Resolving]
  - Pyrexia [Recovered/Resolved]
  - Vomiting [Recovered/Resolved]

NARRATIVE: CASE EVENT DATE: 20240910
